FAERS Safety Report 8773876 (Version 1)
Quarter: 2012Q4

REPORT INFORMATION
  Report Type: 
  Country: US (occurrence: US)
  Receive Date: 20120907
  Receipt Date: 20120907
  Transmission Date: 20130627
  Serious: Yes (Other)
  Sender: FDA-Public Use
  Company Number: US-ASTRAZENECA-2012SE65487

PATIENT
  Age: 68 Year
  Sex: Female
  Weight: 99.8 kg

DRUGS (3)
  1. CRESTOR [Suspect]
     Indication: BLOOD CHOLESTEROL ABNORMAL
     Route: 048
  2. ASPIRIN [Concomitant]
  3. ALLERGY MEDICATION [Concomitant]

REACTIONS (11)
  - Rotator cuff syndrome [Unknown]
  - Varicose vein [Unknown]
  - Malaise [Unknown]
  - Dehydration [Unknown]
  - Vomiting [Unknown]
  - Blood electrolytes abnormal [Unknown]
  - Asthma [Unknown]
  - Myalgia [Recovering/Resolving]
  - Arthralgia [Recovering/Resolving]
  - Nausea [Unknown]
  - Blood cholesterol increased [Unknown]
